FAERS Safety Report 5779833-5 (Version None)
Quarter: 2008Q2

REPORT INFORMATION
  Report Type: 
  Country: None (occurrence: None)
  Receive Date: 20080620
  Receipt Date: 20080609
  Transmission Date: 20081010
  Serious: Yes (Other)
  Sender: FDA-Public Use
  Company Number: PHRM2008FR00518

PATIENT
  Sex: Female

DRUGS (8)
  1. NEORAL [Suspect]
     Indication: LIVER TRANSPLANT
     Dosage: 200 MG/DAY
     Route: 048
     Dates: start: 20070101
  2. ISRADIPINE [Suspect]
     Dosage: 2.5 MG/DAY
     Route: 048
  3. COPEGUS [Suspect]
     Dosage: 6 DF/DAY
     Route: 048
     Dates: start: 20070201
  4. PEGASYS [Suspect]
     Dosage: 180 MG, QW
     Route: 058
     Dates: start: 20070201
  5. OMEPRAZOLE [Suspect]
     Dosage: 20 MG/DAY
     Route: 048
  6. POTASSIUM CHLORIDE [Suspect]
     Dosage: 1 DF/DAY
     Route: 048
  7. COZAAR [Suspect]
     Dosage: 50 MG/DAY
     Route: 048
  8. LASIX [Suspect]
     Dosage: 40 MG/DAY
     Route: 048

REACTIONS (11)
  - ALANINE AMINOTRANSFERASE INCREASED [None]
  - ASPARTATE AMINOTRANSFERASE INCREASED [None]
  - BILIARY TRACT DISORDER [None]
  - BLOOD ALKALINE PHOSPHATASE INCREASED [None]
  - BLOOD BILIRUBIN INCREASED [None]
  - GAMMA-GLUTAMYLTRANSFERASE INCREASED [None]
  - HEPATIC FIBROSIS [None]
  - HEPATIC STEATOSIS [None]
  - LIVER FUNCTION TEST ABNORMAL [None]
  - METABOLIC SYNDROME [None]
  - NUCLEAR MAGNETIC RESONANCE IMAGING ABNORMAL [None]
